FAERS Safety Report 9735763 (Version 1)
Quarter: 2013Q4

REPORT INFORMATION
  Report Type: Spontaneous
  Country: US (occurrence: US)
  Receive Date: 20131206
  Receipt Date: 20131206
  Transmission Date: 20140711
  Serious: No
  Sender: FDA-Public Use
  Company Number: US-GILEAD-2009-0022991

PATIENT
  Age: 32 Year
  Sex: Female

DRUGS (7)
  1. LETAIRIS [Suspect]
     Indication: PULMONARY ARTERIAL HYPERTENSION
     Route: 048
     Dates: start: 20090603
  2. COUMADIN [Concomitant]
  3. METOPROLOL [Concomitant]
  4. TRAZODONE [Concomitant]
  5. CYMBALTA [Concomitant]
  6. PRILOSEC [Concomitant]
  7. WELLBUTRIN [Concomitant]

REACTIONS (4)
  - Flushing [Recovered/Resolved]
  - Palpitations [Recovered/Resolved]
  - Weight increased [Unknown]
  - Local swelling [Unknown]
